FAERS Safety Report 5307200-7 (Version None)
Quarter: 2007Q2

REPORT INFORMATION
  Report Type: 
  Country: None (occurrence: None)
  Receive Date: 20070425
  Receipt Date: 20070301
  Transmission Date: 20071010
  Serious: No
  Sender: FDA-Public Use
  Company Number: US-AMGEN-US213321

PATIENT
  Sex: Male

DRUGS (3)
  1. VECTIBIX [Suspect]
     Indication: COLORECTAL CANCER
  2. OXALIPLATIN [Concomitant]
     Route: 065
  3. AVASTIN [Concomitant]
     Route: 065

REACTIONS (2)
  - DIARRHOEA [None]
  - RASH [None]
